FAERS Safety Report 13753605 (Version 1)
Quarter: 2017Q3

REPORT INFORMATION
  Report Type: Spontaneous
  Country: UA (occurrence: UA)
  Receive Date: 20170713
  Receipt Date: 20170713
  Transmission Date: 20171127
  Serious: Yes (Other)
  Sender: FDA-Public Use
  Company Number: UA-CORDEN PHARMA LATINA S.P.A.-UA-2017COR000155

PATIENT
  Age: 46 Year
  Sex: Male

DRUGS (7)
  1. DOXORUBICIN [Suspect]
     Active Substance: DOXORUBICIN
     Indication: HODGKIN^S DISEASE
     Dosage: UNK, 6 COURSES FOR 14 DAYS EACH
     Route: 065
  2. CYCLOPHOSPHAMIDE. [Suspect]
     Active Substance: CYCLOPHOSPHAMIDE
     Indication: HODGKIN^S DISEASE
     Dosage: UNK, 6 COURSES FOR 14 DAYS EACH
  3. BLEOMYCIN [Suspect]
     Active Substance: BLEOMYCIN SULFATE
     Indication: HODGKIN^S DISEASE
     Dosage: UNK, 6 COURSES FOR 14 DAYS EACH
  4. PREDNISONE. [Suspect]
     Active Substance: PREDNISONE
     Indication: HODGKIN^S DISEASE
     Dosage: UNK, 6 COURSES FOR 14 DAYS EACH
  5. PROCARBAZINE [Suspect]
     Active Substance: PROCARBAZINE
     Indication: HODGKIN^S DISEASE
     Dosage: UNK, 6 COURSES FOR 14 DAYS EACH
  6. VINCRISTINE [Suspect]
     Active Substance: VINCRISTINE
     Indication: HODGKIN^S DISEASE
     Dosage: UNK, 6 COURSES FOR 14 DAYS EACH
  7. ETOPOSIDE. [Suspect]
     Active Substance: ETOPOSIDE
     Indication: HODGKIN^S DISEASE
     Dosage: UNK, 6 COURSES FOR 14 DAYS EACH
     Route: 065

REACTIONS (2)
  - Atrial fibrillation [Recovered/Resolved]
  - Polyneuropathy [Recovered/Resolved]
